FAERS Safety Report 15112480 (Version 1)
Quarter: 2018Q2

REPORT INFORMATION
  Report Type: Spontaneous
  Country: US (occurrence: US)
  Receive Date: 20180612
  Receipt Date: 20180612
  Transmission Date: 20180711
  Serious: Yes (Hospitalization)
  Sender: FDA-Public Use
  Company Number: None

PATIENT
  Age: 73 Year
  Sex: Male
  Weight: 76.5 kg

DRUGS (10)
  1. NEURONIN [Concomitant]
  2. LIPITOR [Concomitant]
     Active Substance: ATORVASTATIN CALCIUM
  3. NORVASC [Concomitant]
     Active Substance: AMLODIPINE BESYLATE
  4. ECOTRIN [Concomitant]
     Active Substance: ASPIRIN
  5. AMARYL [Concomitant]
     Active Substance: GLIMEPIRIDE
  6. ARICEPT [Concomitant]
     Active Substance: DONEPEZIL HYDROCHLORIDE
  7. LAMICTAL [Concomitant]
     Active Substance: LAMOTRIGINE
  8. PRINIVIL [Concomitant]
     Active Substance: LISINOPRIL
  9. MEDROL [Concomitant]
     Active Substance: METHYLPREDNISOLONE
  10. PERCOCET [Suspect]
     Active Substance: ACETAMINOPHEN\OXYCODONE HYDROCHLORIDE
     Indication: NEURALGIA
     Dosage: 10/325MG Q6HRS PRN PO CHRONIC
     Route: 048

REACTIONS (3)
  - Mental disorder [None]
  - Syncope [None]
  - Somnolence [None]

NARRATIVE: CASE EVENT DATE: 20180315
